FAERS Safety Report 24650767 (Version 5)
Quarter: 2024Q4

REPORT INFORMATION
  Report Type: Spontaneous
  Country: ES (occurrence: ES)
  Receive Date: 20241122
  Receipt Date: 20241231
  Transmission Date: 20250114
  Serious: Yes (Other)
  Sender: RANBAXY
  Company Number: ES-SUN PHARMACEUTICAL INDUSTRIES LTD-2024R1-480149

PATIENT
  Age: 29 Year
  Sex: Female

DRUGS (5)
  1. AMOXICILLIN [Suspect]
     Active Substance: AMOXICILLIN
     Indication: Dermatitis atopic
     Dosage: 1 GRAM/12 H
     Route: 048
  2. AMOXICILLIN [Suspect]
     Active Substance: AMOXICILLIN
     Indication: Antibiotic therapy
  3. AMOXICILLIN [Suspect]
     Active Substance: AMOXICILLIN
     Indication: Dermatitis atopic
  4. IBUPROFEN [Suspect]
     Active Substance: IBUPROFEN
     Indication: Dermatitis atopic
     Dosage: 600 MILLIGRAM/8 H
     Route: 048
  5. IBUPROFEN [Suspect]
     Active Substance: IBUPROFEN
     Indication: Dermatitis atopic

REACTIONS (2)
  - Hypersensitivity [Recovered/Resolved]
  - Palmar-plantar erythrodysaesthesia syndrome [Recovered/Resolved]
